FAERS Safety Report 6887489-3 (Version None)
Quarter: 2010Q3

REPORT INFORMATION
  Report Type: 
  Country: None (occurrence: None)
  Receive Date: 20100730
  Receipt Date: 20100714
  Transmission Date: 20110219
  Serious: Yes (Hospitalization)
  Sender: FDA-Public Use
  Company Number: US-BAYER-201011574NA

PATIENT
  Age: 32 Year
  Sex: Female
  Weight: 125 kg

DRUGS (15)
  1. YASMIN [Suspect]
     Indication: ORAL CONTRACEPTION
     Route: 048
     Dates: start: 20040101, end: 20070107
  2. METHYLPREDNISOLONE [Concomitant]
     Dates: start: 20061204
  3. HYDROXYZINE HCL [Concomitant]
     Indication: RASH
     Dates: start: 20060101, end: 20070101
  4. AMOXICILLIN AND CLAVULANATE POTASSIUM [Concomitant]
  5. CLV [Concomitant]
  6. CIPROFLOXACIN HCL [Concomitant]
  7. SULFAMETHOXAZOLE-T [Concomitant]
  8. NITROFURANTOIN MACROCRYSTALLINE [Concomitant]
  9. LEVAQUIN [Concomitant]
  10. AZITHROMYCIN [Concomitant]
  11. CLINDAMYCIN [Concomitant]
  12. TETRACYCLINE [Concomitant]
  13. SULFATRIM [Concomitant]
  14. METRONIDAZOLE [Concomitant]
  15. CLARITHROMYCIN [Concomitant]

REACTIONS (4)
  - DYSPNOEA [None]
  - GROIN PAIN [None]
  - INGUINAL MASS [None]
  - PULMONARY EMBOLISM [None]
